FAERS Safety Report 10516431 (Version 2)
Quarter: 2014Q4

REPORT INFORMATION
  Report Type: Spontaneous
  Country: US (occurrence: US)
  Receive Date: 20141014
  Receipt Date: 20141014
  Transmission Date: 20150528
  Serious: Yes (Other)
  Sender: FDA-Public Use
  Company Number: US-GLAXOSMITHKLINE-A1078991A

PATIENT
  Sex: Female

DRUGS (2)
  1. NO CONCURRENT MEDICATION [Concomitant]
     Active Substance: UNSPECIFIED INGREDIENT
  2. LOVAZA [Suspect]
     Active Substance: OMEGA-3-ACID ETHYL ESTERS
     Indication: VISUAL IMPAIRMENT
     Dosage: 2 G, BID
     Route: 048
     Dates: start: 20131028

REACTIONS (9)
  - Macular degeneration [Not Recovered/Not Resolved]
  - Road traffic accident [Not Recovered/Not Resolved]
  - Internal fixation of fracture [Unknown]
  - Pain [Unknown]
  - Patella fracture [Unknown]
  - Head injury [Unknown]
  - Cataract [Not Recovered/Not Resolved]
  - Memory impairment [Not Recovered/Not Resolved]
  - Visual impairment [Not Recovered/Not Resolved]
